FAERS Safety Report 18385843 (Version 2)
Quarter: 2021Q1

REPORT INFORMATION
  Report Type: Spontaneous
  Country: BE (occurrence: BE)
  Receive Date: 20201015
  Receipt Date: 20210106
  Transmission Date: 20210419
  Serious: Yes (Other)
  Sender: FDA-Public Use
  Company Number: BE-TEVA-2019-BE-1077870

PATIENT
  Age: 59 Year
  Sex: Female

DRUGS (10)
  1. METHOTREXATE. [Suspect]
     Active Substance: METHOTREXATE
     Indication: SCHNITZLER^S SYNDROME
     Route: 065
  2. DAPSONE. [Suspect]
     Active Substance: DAPSONE
     Indication: SCHNITZLER^S SYNDROME
     Route: 065
  3. METHYLPREDNISOLONE. [Concomitant]
     Active Substance: METHYLPREDNISOLONE
     Indication: SCHNITZLER^S SYNDROME
     Dosage: INITIALLY, HIGH?DOSE, TO ACHIEVE SYMPTOMATIC CONTROL
     Route: 065
  4. AZATHIOPRINE. [Suspect]
     Active Substance: AZATHIOPRINE
     Indication: SCHNITZLER^S SYNDROME
     Route: 065
  5. COLCHICINE. [Suspect]
     Active Substance: COLCHICINE
     Indication: SCHNITZLER^S SYNDROME
     Dosage: 2 MILLIGRAM DAILY;
     Route: 065
     Dates: start: 2013, end: 2019
  6. HYDROXYCHLOROQUINE [Suspect]
     Active Substance: HYDROXYCHLOROQUINE
     Indication: SCHNITZLER^S SYNDROME
     Route: 065
  7. TOCILIZUMAB. [Concomitant]
     Active Substance: TOCILIZUMAB
     Indication: SCHNITZLER^S SYNDROME
     Dosage: ADMINISTERED AT THIS DOSE ALONGSIDE METHYLPREDNISOLONE AND COLCHICINE TO ACHIEVE COMPLETE REMISSION
     Route: 042
  8. METHYLPREDNISOLONE. [Concomitant]
     Active Substance: METHYLPREDNISOLONE
     Indication: SCHNITZLER^S SYNDROME
     Dosage: ADMINISTERED AT THIS DOSE ALONGSIDE TOCILIZUMAB AND COLCHICINE TO ACHIEVE COMPLETE REMISSION
     Route: 065
  9. ANAKINRA [Suspect]
     Active Substance: ANAKINRA
     Indication: SCHNITZLER^S SYNDROME
     Dosage: 100 MILLIGRAM DAILY;
     Route: 058
     Dates: start: 202002
  10. PARACETAMOL [Concomitant]
     Active Substance: ACETAMINOPHEN
     Indication: SCHNITZLER^S SYNDROME
     Dosage: THRICE A DAY
     Route: 065
     Dates: start: 2015, end: 201912

REACTIONS (5)
  - Injection site reaction [Recovered/Resolved]
  - Off label use [Unknown]
  - Drug ineffective [Unknown]
  - Inflammation [Recovered/Resolved]
  - Injection site erythema [Recovered/Resolved]
